FAERS Safety Report 6805855-9 (Version None)
Quarter: 2010Q2

REPORT INFORMATION
  Report Type: 
  Country: None (occurrence: None)
  Receive Date: 20100629
  Receipt Date: 20080130
  Transmission Date: 20101027
  Serious: No
  Sender: FDA-Public Use
  Company Number: US-PFIZER INC-2007095870

PATIENT
  Sex: Male
  Weight: 93.2 kg

DRUGS (7)
  1. CARDURA [Suspect]
     Indication: BENIGN PROSTATIC HYPERPLASIA
     Route: 048
     Dates: start: 20070101
  2. WARFARIN [Concomitant]
  3. METOPROLOL [Concomitant]
     Indication: MYOCARDIAL INFARCTION
  4. TOPAMAX [Concomitant]
     Indication: TREMOR
  5. ACETYLSALICYLIC ACID [Concomitant]
  6. FEXOFENADINE [Concomitant]
     Indication: HYPERSENSITIVITY
  7. CORAL CALCIUM [Concomitant]

REACTIONS (3)
  - DRUG EFFECT DECREASED [None]
  - MEDICATION RESIDUE [None]
  - WRONG TECHNIQUE IN DRUG USAGE PROCESS [None]
